FAERS Safety Report 7397630-4 (Version None)
Quarter: 2011Q2

REPORT INFORMATION
  Report Type: 
  Country: None (occurrence: None)
  Receive Date: 20110406
  Receipt Date: 20110331
  Transmission Date: 20111010
  Serious: Yes (Death, Life-Threatening)
  Sender: FDA-Public Use
  Company Number: JP-PFIZER INC-2010141915

PATIENT
  Age: 54 Year
  Sex: Female
  Weight: 53 kg

DRUGS (11)
  1. POLARAMINE [Concomitant]
     Dosage: 2 MG, 3X/DAY
  2. SELBEX [Concomitant]
     Dosage: 50 MG, 3X/DAY
  3. TAKEPRON [Concomitant]
     Dosage: 15 MG, 1X/DAY
  4. FERRO-GRADUMET [Concomitant]
     Dosage: 105 MG, 1X/DAY
  5. NOVAMIN [Concomitant]
     Dosage: 5 MG, 3X/DAY
  6. LASIX [Concomitant]
     Dosage: 40 MG, 1X/DAY
  7. DECADRON [Concomitant]
     Dosage: 0.5 MG, 2X/DAY
  8. TEMSIROLIMUS [Suspect]
     Indication: RENAL CELL CARCINOMA
     Dosage: 15 MG, WEEKLY
     Route: 042
     Dates: start: 20101006, end: 20101020
  9. MAG-LAX [Concomitant]
     Dosage: 330 MG, 3X/DAY
  10. VOLTAREN [Concomitant]
     Dosage: 25 MG, 3X/DAY
  11. PURSENNID [Concomitant]
     Dosage: 36 MG, UNK

REACTIONS (4)
  - RENAL CELL CARCINOMA [None]
  - PLEURAL EFFUSION [None]
  - DISEASE PROGRESSION [None]
  - DYSPNOEA [None]
